FAERS Safety Report 10455365 (Version 2)
Quarter: 2014Q3

REPORT INFORMATION
  Report Type: Spontaneous
  Country: US (occurrence: US)
  Receive Date: 20140916
  Receipt Date: 20140922
  Transmission Date: 20150326
  Serious: Yes (Life-Threatening, Disabling, Other)
  Sender: FDA-Public Use
  Company Number: US-009507513-1409USA006578

PATIENT
  Age: 13 Year
  Sex: Female

DRUGS (3)
  1. EMEND [Suspect]
     Active Substance: APREPITANT
     Indication: EWING^S SARCOMA
     Dosage: 5TH DOSE
     Route: 042
     Dates: start: 20140911, end: 20140911
  2. EMEND [Suspect]
     Active Substance: APREPITANT
     Dosage: UNK
     Route: 042
     Dates: start: 201406, end: 2014
  3. DECADRON [Concomitant]
     Active Substance: DEXAMETHASONE

REACTIONS (6)
  - Nausea [Recovering/Resolving]
  - Bronchospasm [Recovering/Resolving]
  - Tachycardia [Recovering/Resolving]
  - Rash erythematous [Recovering/Resolving]
  - Cough [Recovering/Resolving]
  - Flushing [Recovering/Resolving]

NARRATIVE: CASE EVENT DATE: 20140911
